FAERS Safety Report 13921657 (Version 1)
Quarter: 2017Q3

REPORT INFORMATION
  Report Type: Spontaneous
  Country: JP (occurrence: JP)
  Receive Date: 20170830
  Receipt Date: 20170830
  Transmission Date: 20171127
  Serious: Yes (Other)
  Sender: FDA-Public Use
  Company Number: JP-EISAI MEDICAL RESEARCH-EC-2017-030653

PATIENT
  Age: 82 Year
  Sex: Male

DRUGS (17)
  1. TAMSULOSIN HYDROCHLORIDE. [Interacting]
     Active Substance: TAMSULOSIN HYDROCHLORIDE
     Indication: PRODUCT USED FOR UNKNOWN INDICATION
     Route: 048
  2. NITRAZEPAM [Interacting]
     Active Substance: NITRAZEPAM
     Indication: PRODUCT USED FOR UNKNOWN INDICATION
     Route: 048
  3. ASPARA-CA [Interacting]
     Active Substance: CALCIUM ASPARTATE
     Indication: PRODUCT USED FOR UNKNOWN INDICATION
     Route: 048
  4. ZOLPIDEM TARTRATE. [Interacting]
     Active Substance: ZOLPIDEM TARTRATE
     Indication: PRODUCT USED FOR UNKNOWN INDICATION
     Route: 048
  5. SENNOSIDE [Interacting]
     Active Substance: SENNOSIDES
     Indication: PRODUCT USED FOR UNKNOWN INDICATION
     Route: 048
  6. VONOPRAZAN FUMARATE [Interacting]
     Active Substance: VONOPRAZAN FUMURATE
     Indication: PRODUCT USED FOR UNKNOWN INDICATION
     Route: 048
  7. MAGNESIUM OXIDE. [Interacting]
     Active Substance: MAGNESIUM OXIDE
     Indication: PRODUCT USED FOR UNKNOWN INDICATION
     Route: 048
  8. PREGABALIN. [Interacting]
     Active Substance: PREGABALIN
     Dosage: UNKNOWN (DOSE REDUCED)
     Route: 048
     Dates: start: 20160630
  9. ESOMEPRAZOLE MAGNESIUM. [Interacting]
     Active Substance: ESOMEPRAZOLE MAGNESIUM
     Indication: PRODUCT USED FOR UNKNOWN INDICATION
     Route: 048
  10. MOSAPRIDE CITRATE [Interacting]
     Active Substance: MOSAPRIDE CITRATE
     Indication: PRODUCT USED FOR UNKNOWN INDICATION
     Route: 048
  11. PARACETAMOL/TRAMADOL HYDROCHLORIDE [Interacting]
     Active Substance: ACETAMINOPHEN\TRAMADOL HYDROCHLORIDE
     Indication: PRODUCT USED FOR UNKNOWN INDICATION
     Route: 048
     Dates: end: 20160629
  12. URSODEOXYCHOLIC ACID [Interacting]
     Active Substance: URSODIOL
     Indication: PRODUCT USED FOR UNKNOWN INDICATION
     Route: 048
  13. DONEPEZIL. [Suspect]
     Active Substance: DONEPEZIL
     Indication: PRODUCT USED FOR UNKNOWN INDICATION
     Route: 048
  14. PREGABALIN. [Interacting]
     Active Substance: PREGABALIN
     Indication: PRODUCT USED FOR UNKNOWN INDICATION
     Route: 048
     Dates: end: 20160629
  15. RHEUM PALMATUM DRY EXTRACT [Interacting]
     Active Substance: HERBALS
     Indication: PRODUCT USED FOR UNKNOWN INDICATION
     Route: 048
  16. PARACETAMOL/TRAMADOL HYDROCHLORIDE [Interacting]
     Active Substance: ACETAMINOPHEN\TRAMADOL HYDROCHLORIDE
     Dosage: UNKNOWN (DOSE REDUCED)
     Route: 048
     Dates: start: 20160630
  17. NEUROVITAN [Interacting]
     Active Substance: VITAMINS
     Indication: PRODUCT USED FOR UNKNOWN INDICATION
     Route: 048

REACTIONS (2)
  - Dementia [Recovering/Resolving]
  - Drug interaction [Recovering/Resolving]

NARRATIVE: CASE EVENT DATE: 201601
